FAERS Safety Report 10948306 (Version 1)
Quarter: 2015Q1

REPORT INFORMATION
  Report Type: Spontaneous
  Country: US (occurrence: None)
  Receive Date: 20150320
  Receipt Date: 20150320
  Transmission Date: 20150721
  Serious: Yes (Other)
  Sender: FDA-Public Use
  Company Number: US2015GSK035290

PATIENT
  Age: 56 Year
  Sex: Male
  Weight: 80.7 kg

DRUGS (1)
  1. TIVICAY [Suspect]
     Active Substance: DOLUTEGRAVIR SODIUM
     Indication: HIV INFECTION
     Route: 048
     Dates: start: 2013

REACTIONS (6)
  - Musculoskeletal pain [None]
  - Myalgia [None]
  - Arthropathy [None]
  - Arthralgia [None]
  - Muscle disorder [None]
  - Pain in extremity [None]

NARRATIVE: CASE EVENT DATE: 20141001
